FAERS Safety Report 9968687 (Version 2)
Quarter: 2014Q1

REPORT INFORMATION
  Report Type: Spontaneous
  Country: IT (occurrence: IT)
  Receive Date: 20140306
  Receipt Date: 20140318
  Transmission Date: 20141002
  Serious: Yes (Hospitalization)
  Sender: FDA-Public Use
  Company Number: IT-009507513-1402ITA012384

PATIENT
  Age: 65 Year
  Sex: Female

DRUGS (4)
  1. MK-0000 (001) [Suspect]
     Dosage: UNK
  2. RIBAVIRIN [Suspect]
     Indication: CHRONIC HEPATITIS C
     Dosage: TOTAL DAILY DOSE 800MG, DAILY
     Route: 048
     Dates: start: 20140204, end: 20140210
  3. PEGINTERFERON ALFA-2A [Concomitant]
     Indication: CHRONIC HEPATITIS C
     Dosage: 180 MICROGRAM,UNK
     Route: 058
     Dates: start: 20140124, end: 20140210
  4. TELAPREVIR [Concomitant]
     Indication: CHRONIC HEPATITIS C
     Dosage: 2250 MG, UNK
     Route: 048
     Dates: start: 20140124, end: 20140210

REACTIONS (2)
  - Asthenia [Recovering/Resolving]
  - Anaemia [Recovering/Resolving]
